FAERS Safety Report 23485045 (Version 1)
Quarter: 2024Q1

REPORT INFORMATION
  Report Type: Spontaneous
  Country: US (occurrence: US)
  Receive Date: 20240206
  Receipt Date: 20240206
  Transmission Date: 20240410
  Serious: Yes (Hospitalization, Other)
  Sender: FDA-Public Use
  Company Number: US-SA-SAC20240202000110

PATIENT
  Sex: Female
  Weight: 141 kg

DRUGS (1)
  1. DUPIXENT [Suspect]
     Active Substance: DUPILUMAB
     Indication: Neurodermatitis
     Dosage: 300 MG, QOW
     Route: 058

REACTIONS (7)
  - Pneumonia [Unknown]
  - Influenza [Unknown]
  - COVID-19 [Unknown]
  - Dyspnoea [Unknown]
  - Rash pruritic [Unknown]
  - Pyrexia [Unknown]
  - Urinary tract infection [Unknown]
